FAERS Safety Report 6859193-9 (Version None)
Quarter: 2010Q3

REPORT INFORMATION
  Report Type: 
  Country: None (occurrence: None)
  Receive Date: 20100719
  Receipt Date: 20080222
  Transmission Date: 20110219
  Serious: No
  Sender: FDA-Public Use
  Company Number: US-PFIZER INC-2008017900

PATIENT
  Sex: Female
  Weight: 72.7 kg

DRUGS (6)
  1. CHANTIX [Suspect]
     Indication: SMOKING CESSATION THERAPY
     Dates: start: 20070401, end: 20070601
  2. SITAGLIPTIN [Concomitant]
  3. ZOCOR [Concomitant]
  4. EFFEXOR [Concomitant]
  5. DETROL [Concomitant]
  6. INSULIN [Concomitant]

REACTIONS (1)
  - ABNORMAL DREAMS [None]
